FAERS Safety Report 19584095 (Version 3)
Quarter: 2021Q3

REPORT INFORMATION
  Report Type: Spontaneous
  Country: US (occurrence: US)
  Receive Date: 20210720
  Receipt Date: 20210723
  Transmission Date: 20211014
  Serious: No
  Sender: FDA-Public Use
  Company Number: US-TEVA-2021-US-1933210

PATIENT
  Age: 76 Year
  Sex: Female

DRUGS (1)
  1. AJOVY [Suspect]
     Active Substance: FREMANEZUMAB-VFRM
     Indication: MIGRAINE
     Dosage: STRENGTH: 225 MG / 1.5 ML
     Route: 065
     Dates: end: 2021

REACTIONS (5)
  - Therapy non-responder [Unknown]
  - Injection site pain [Unknown]
  - Injection site erythema [Recovered/Resolved]
  - Depressed mood [Unknown]
  - Injection site rash [Unknown]

NARRATIVE: CASE EVENT DATE: 2021
